FAERS Safety Report 26205483 (Version 1)
Quarter: 2025Q4

REPORT INFORMATION
  Report Type: Spontaneous
  Country: JP (occurrence: JP)
  Receive Date: 20251228
  Receipt Date: 20251228
  Transmission Date: 20260118
  Serious: Yes (Other)
  Sender: JOHNSON AND JOHNSON
  Company Number: JP-JNJFOC-20251235128

PATIENT
  Age: 55 Year
  Sex: Female

DRUGS (8)
  1. SIMPONI [Suspect]
     Active Substance: GOLIMUMAB
     Indication: Takayasu^s arteritis
     Dosage: DOSE UNKNOWN
     Route: 058
  2. TACROLIMUS [Concomitant]
     Active Substance: TACROLIMUS
     Indication: Takayasu^s arteritis
     Dosage: DOSE UNKNOWN
  3. METHOTREXATE [Concomitant]
     Active Substance: METHOTREXATE
     Indication: Takayasu^s arteritis
     Dosage: DOSE UNKNOWN
  4. TOCILIZUMAB [Concomitant]
     Active Substance: TOCILIZUMAB
     Indication: Takayasu^s arteritis
     Dosage: DOSE UNKNOWN
  5. PREDNISOLONE [Concomitant]
     Active Substance: PREDNISOLONE
     Indication: Takayasu^s arteritis
     Dosage: DOSE UNKNOWN
  6. PREDNISOLONE [Concomitant]
     Active Substance: PREDNISOLONE
  7. IXEKIZUMAB [Concomitant]
     Active Substance: IXEKIZUMAB
     Indication: Takayasu^s arteritis
     Dosage: DOSE UNKNOWN
  8. HYDROCORTISONE [Concomitant]
     Active Substance: HYDROCORTISONE
     Indication: Takayasu^s arteritis

REACTIONS (3)
  - Takayasu^s arteritis [Unknown]
  - Rash pustular [Unknown]
  - Off label use [Unknown]
